FAERS Safety Report 8336498 (Version 7)
Quarter: 2014Q2

REPORT INFORMATION
  Report Type: Spontaneous
  Country: US (occurrence: US)
  Receive Date: 20120113
  Receipt Date: 20140425
  Transmission Date: 20141212
  Serious: Yes (Hospitalization, Other)
  Sender: FDA-Public Use
  Company Number: US-PFIZER INC-2012007974

PATIENT
  Age: 81 Year
  Sex: Female
  Weight: 90.7 kg

DRUGS (9)
  1. LYRICA [Suspect]
     Indication: PAIN
     Dosage: UNK, 2X/DAY
     Route: 048
  2. CELEBREX [Suspect]
     Indication: ARTHRITIS
     Dosage: 200 MG, 2X/DAY
     Route: 048
  3. CELEBREX [Suspect]
     Indication: ARTHRALGIA
  4. OMEPRAZOLE [Concomitant]
     Dosage: 20 MG, 2X/DAY
  5. METOPROLOL [Concomitant]
     Dosage: UNK
  6. LOSARTAN [Concomitant]
     Dosage: UNK
  7. ASPIRIN [Concomitant]
     Dosage: 81 MG, UNK
  8. TYLENOL [Concomitant]
     Dosage: 500 MG, UNK
  9. TRAMADOL [Concomitant]
     Dosage: UNK

REACTIONS (9)
  - Pneumonia [Unknown]
  - Arthropathy [Unknown]
  - Arthritis infective [Unknown]
  - Tendon disorder [Unknown]
  - Surgical failure [Unknown]
  - Loss of consciousness [Unknown]
  - Amnesia [Unknown]
  - Malaise [Unknown]
  - Nervousness [Unknown]
